FAERS Safety Report 21982356 (Version 3)
Quarter: 2023Q1

REPORT INFORMATION
  Report Type: Spontaneous
  Country: PT (occurrence: PT)
  Receive Date: 20230213
  Receipt Date: 20230317
  Transmission Date: 20230417
  Serious: Yes (Hospitalization, Other)
  Sender: FDA-Public Use
  Company Number: PT-BASI-2023001354

PATIENT

DRUGS (3)
  1. ROSUVASTATIN [Suspect]
     Active Substance: ROSUVASTATIN
     Indication: Dyslipidaemia
     Dosage: SINCE 6 MONTHS AGO
     Route: 065
  2. SIMVASTATIN [Suspect]
     Active Substance: SIMVASTATIN
     Indication: Product used for unknown indication
     Route: 065
  3. Levothyroxine sodium 0.075mg [Concomitant]
     Indication: Product used for unknown indication
     Dosage: 0.075 MILLIGRAM (FOR OVER 5 YEARS)
     Route: 065

REACTIONS (6)
  - Tubulointerstitial nephritis [Recovered/Resolved]
  - Nephropathy toxic [Recovered/Resolved]
  - Nephritis allergic [Recovered/Resolved]
  - Decreased appetite [Recovered/Resolved]
  - Skin exfoliation [Unknown]
  - Fatigue [Recovered/Resolved]
